FAERS Safety Report 18942359 (Version 1)
Quarter: 2021Q1

REPORT INFORMATION
  Report Type: Report from Study
  Country: US (occurrence: US)
  Receive Date: 20210225
  Receipt Date: 20210225
  Transmission Date: 20210420
  Serious: Yes (Death, Hospitalization)
  Sender: FDA-Public Use
  Company Number: US-JNJFOC-A-NJ2020-203055

PATIENT
  Age: 17 Month
  Sex: Female
  Weight: 6.35 kg

DRUGS (37)
  1. ACETYLSALICYLIC ACID [Concomitant]
     Active Substance: ASPIRIN
     Dosage: 20.25 MG?GASTROENTERAL USE
     Dates: start: 201910
  2. ATROPIN SULFATE [Concomitant]
     Active Substance: ATROPINE SULFATE
  3. GLYCERINE [Concomitant]
     Active Substance: GLYCERIN
  4. LORAZEPAM. [Concomitant]
     Active Substance: LORAZEPAM
  5. PHENOBARBITAL. [Concomitant]
     Active Substance: PHENOBARBITAL
  6. POLYETHYLENE GLYCOL 3350. [Concomitant]
     Active Substance: POLYETHYLENE GLYCOL 3350
  7. BACITRACIN. [Concomitant]
     Active Substance: BACITRACIN
     Dosage: TOPICAL
  8. GLYCOPYRROLATE [GLYCOPYRRONIUM BROMIDE] [Concomitant]
     Active Substance: GLYCOPYRROLATE
  9. LIDOCAINE. [Concomitant]
     Active Substance: LIDOCAINE
  10. TOBRAMYCIN. [Concomitant]
     Active Substance: TOBRAMYCIN
  11. SILDENAFIL. [Concomitant]
     Active Substance: SILDENAFIL
     Dosage: 6 MG, BID?GASTROENTERAL USE
     Dates: start: 201910
  12. CALCIUM CHLORIDE. [Concomitant]
     Active Substance: CALCIUM CHLORIDE
  13. CHLOROTHIAZIDE. [Concomitant]
     Active Substance: CHLOROTHIAZIDE
     Dosage: 30 MG, BID?GASTROENTERAL USE
     Dates: start: 201910
  14. ERYTHROMYCIN ETHYLSUCCINATE. [Concomitant]
     Active Substance: ERYTHROMYCIN ETHYLSUCCINATE
  15. LEVOTHYROXINE. [Concomitant]
     Active Substance: LEVOTHYROXINE
  16. REMODULIN [Concomitant]
     Active Substance: TREPROSTINIL
     Dosage: 60 NG/KG, PER MIN?INTRAVENOUS (NOT OTHERWISE SPECIFIED)
     Dates: start: 202001
  17. CLONIDINE. [Concomitant]
     Active Substance: CLONIDINE
  18. DIAZEPAM. [Concomitant]
     Active Substance: DIAZEPAM
  19. SIMETHICONE (DIMETHICONE) [Concomitant]
     Active Substance: DIMETHICONE
  20. ALBUTEROL [SALBUTAMOL] [Concomitant]
     Active Substance: ALBUTEROL
  21. HEPARIN [Concomitant]
     Active Substance: HEPARIN SODIUM
  22. METHADONE [Concomitant]
     Active Substance: METHADONE HYDROCHLORIDE
  23. POTASSIUM CHLORIDE. [Concomitant]
     Active Substance: POTASSIUM CHLORIDE
  24. MAGNESIUM SULFATE. [Concomitant]
     Active Substance: MAGNESIUM SULFATE
  25. TRACLEER [Suspect]
     Active Substance: BOSENTAN
     Indication: PULMONARY ARTERIAL HYPERTENSION
     Dosage: 16 MG, BID
     Route: 048
  26. TRACLEER [Suspect]
     Active Substance: BOSENTAN
     Dosage: 12.5 MG, BID
     Route: 048
     Dates: start: 20191001
  27. FUROSEMIDE. [Concomitant]
     Active Substance: FUROSEMIDE
     Dosage: 10 MG, BID?GASTROENTERAL USE
     Dates: start: 201910
  28. DIPHENHYDRAMINE. [Concomitant]
     Active Substance: DIPHENHYDRAMINE
  29. EPINEPHRINE. [Concomitant]
     Active Substance: EPINEPHRINE
  30. SODIUM BICARBONATE. [Concomitant]
     Active Substance: SODIUM BICARBONATE
  31. ACETAMINOPHEN. [Concomitant]
     Active Substance: ACETAMINOPHEN
     Dosage: ORAL
  32. CLOPIDOGREL [Concomitant]
     Active Substance: CLOPIDOGREL BISULFATE
  33. DOCUSATE [Concomitant]
     Active Substance: DOCUSATE
  34. HYDROCORTISONE. [Concomitant]
     Active Substance: HYDROCORTISONE
  35. LANSOPRAZOLE. [Concomitant]
     Active Substance: LANSOPRAZOLE
  36. PETROLATUM/MINERAL OIL [Concomitant]
  37. SPIRONOLACTONE. [Concomitant]
     Active Substance: SPIRONOLACTONE

REACTIONS (17)
  - Heart disease congenital [Fatal]
  - Illness [Unknown]
  - Pulmonary hypertension [Fatal]
  - Oxygen saturation decreased [Unknown]
  - Flushing [Not Recovered/Not Resolved]
  - Dyspnoea [Unknown]
  - Hypoxia [Fatal]
  - Heart rate increased [Unknown]
  - Respiratory distress [Unknown]
  - Diarrhoea [Recovering/Resolving]
  - Device occlusion [Unknown]
  - Cyanosis [Unknown]
  - Fluid retention [Unknown]
  - Hypotension [Unknown]
  - Hospitalisation [Unknown]
  - Discomfort [Unknown]
  - Off label use [Unknown]
